FAERS Safety Report 21045271 (Version 1)
Quarter: 2022Q3

REPORT INFORMATION
  Report Type: Report from Study
  Country: AU (occurrence: AU)
  Receive Date: 20220705
  Receipt Date: 20220705
  Transmission Date: 20221027
  Serious: Yes (Hospitalization, Other)
  Sender: FDA-Public Use
  Company Number: AU-CELGENE-AUS-20180408036

PATIENT
  Age: 75 Year
  Sex: Male
  Weight: 73 kg

DRUGS (20)
  1. AZACITIDINE [Suspect]
     Active Substance: AZACITIDINE
     Indication: Acute myeloid leukaemia
     Dosage: 75 MILLIGRAM/SQ. METER?DURATION TEXT : DAY 1 TO 7
     Route: 058
     Dates: start: 20171023
  2. VENETOCLAX [Concomitant]
     Active Substance: VENETOCLAX
     Indication: Acute myeloid leukaemia
     Dosage: 10 MILLIGRAM
     Route: 048
     Dates: start: 20171023, end: 20171023
  3. VENETOCLAX [Concomitant]
     Active Substance: VENETOCLAX
     Dosage: 20 MILLIGRAM
     Route: 048
     Dates: start: 20171024, end: 20171024
  4. VENETOCLAX [Concomitant]
     Active Substance: VENETOCLAX
     Dosage: 50 MILLIGRAM
     Route: 048
     Dates: start: 20171025, end: 20180408
  5. VENETOCLAX [Concomitant]
     Active Substance: VENETOCLAX
     Dosage: 50 MILLIGRAM
     Route: 048
     Dates: start: 20180423
  6. ALLOPURINOL [Concomitant]
     Active Substance: ALLOPURINOL
     Indication: Prophylaxis
     Route: 048
  7. ALLOPURINOL [Concomitant]
     Active Substance: ALLOPURINOL
     Dosage: FREQUENCY TEXT: NOT PROVIDED
     Route: 048
  8. ALLOPURINOL [Concomitant]
     Active Substance: ALLOPURINOL
     Dosage: FREQUENCY TEXT: NOT PROVIDED
     Route: 065
     Dates: start: 20170910, end: 20171010
  9. POSACONAZOLE [Concomitant]
     Active Substance: POSACONAZOLE
     Indication: Antifungal prophylaxis
     Dosage: 1 IN 1 D
     Route: 048
  10. POSACONAZOLE [Concomitant]
     Active Substance: POSACONAZOLE
     Dosage: 300 MILLIGRAM
     Route: 048
     Dates: start: 20171010
  11. PANTOPRAZOLE [Concomitant]
     Active Substance: PANTOPRAZOLE
     Indication: Gastrooesophageal reflux prophylaxis
     Dosage: 1 IN 1 D
     Route: 048
  12. PANTOPRAZOLE [Concomitant]
     Active Substance: PANTOPRAZOLE
     Dosage: 40 MILLIGRAM
     Route: 048
     Dates: start: 20170923
  13. FAMCICLOVIR [Concomitant]
     Active Substance: FAMCICLOVIR
     Indication: Antiviral prophylaxis
     Dosage: 2 IN 1 D
     Route: 048
  14. FAMCICLOVIR [Concomitant]
     Active Substance: FAMCICLOVIR
     Dosage: 1000 MILLIGRAM
     Route: 048
     Dates: start: 20171026
  15. EVENING PRIMROSE OIL\HERBALS [Concomitant]
     Active Substance: EVENING PRIMROSE OIL\HERBALS
     Indication: Injection site discomfort
     Dosage: FREQUENCY TEXT: AS REQUIRED
     Route: 061
     Dates: start: 20171024
  16. POTASSIUM CHLORIDE [Concomitant]
     Active Substance: POTASSIUM CHLORIDE
     Indication: Hypokalaemia
     Dosage: 1200 MILLIGRAM
     Route: 048
     Dates: start: 20180412, end: 20180419
  17. POTASSIUM CHLORIDE [Concomitant]
     Active Substance: POTASSIUM CHLORIDE
     Dosage: 2.4 GRAM
     Route: 048
     Dates: start: 20180419, end: 20180516
  18. POTASSIUM CHLORIDE [Concomitant]
     Active Substance: POTASSIUM CHLORIDE
     Dosage: 1200 MILLIGRAM
     Route: 048
     Dates: start: 20180516
  19. LACTULOSE [Concomitant]
     Active Substance: LACTULOSE
     Indication: Constipation
     Dosage: 15 MILLILITER
     Route: 048
     Dates: start: 20180518
  20. PROCTOSEDYL [Concomitant]
     Active Substance: DIBUCAINE HYDROCHLORIDE\HYDROCORTISONE
     Indication: Haemorrhoids
     Dosage: 1 APPLICATION
     Route: 054
     Dates: start: 20180518

REACTIONS (5)
  - Superficial vein thrombosis [Recovered/Resolved]
  - Febrile neutropenia [Recovered/Resolved]
  - Parainfluenzae virus infection [Recovered/Resolved]
  - Staphylococcal bacteraemia [Recovered/Resolved]
  - Febrile neutropenia [Recovered/Resolved]

NARRATIVE: CASE EVENT DATE: 20180412
